FAERS Safety Report 9865530 (Version 1)
Quarter: 2014Q1

REPORT INFORMATION
  Report Type: Spontaneous
  Country: US (occurrence: US)
  Receive Date: 20140203
  Receipt Date: 20140203
  Transmission Date: 20141002
  Serious: No
  Sender: FDA-Public Use
  Company Number: US-ALLERGAN-1309420US

PATIENT
  Age: 58 Year
  Sex: Female

DRUGS (3)
  1. RESTASIS [Suspect]
     Indication: DRY EYE
     Dosage: 2 GTT, BID
     Route: 047
     Dates: start: 20120201, end: 201206
  2. ZYRTEC [Concomitant]
     Indication: HYPERSENSITIVITY
  3. LIMBREL [Concomitant]
     Indication: ARTHRITIS
     Dosage: UNK
     Dates: start: 201205

REACTIONS (2)
  - Ocular hyperaemia [Recovered/Resolved]
  - Ocular hyperaemia [Recovered/Resolved]
